FAERS Safety Report 4832761-1 (Version None)
Quarter: 2005Q4

REPORT INFORMATION
  Report Type: 
  Country: None (occurrence: None)
  Receive Date: 20051117
  Receipt Date: 20051107
  Transmission Date: 20060501
  Serious: No
  Sender: FDA-Public Use
  Company Number: USA-2005-0021782

PATIENT
  Age: 52 Year
  Sex: Female

DRUGS (4)
  1. OXYCODONE HCL [Suspect]
     Indication: PAIN
     Dosage: 40 MG, TID,
     Dates: start: 20050801
  2. SERZONE [Concomitant]
  3. CRESTOR [Concomitant]
  4. PERCOCET [Concomitant]

REACTIONS (4)
  - DYSPNOEA [None]
  - PARAESTHESIA [None]
  - THROAT TIGHTNESS [None]
  - VOMITING [None]
